FAERS Safety Report 7613029-7 (Version None)
Quarter: 2011Q3

REPORT INFORMATION
  Report Type: 
  Country: None (occurrence: None)
  Receive Date: 20110708
  Receipt Date: 20110628
  Transmission Date: 20111222
  Serious: Yes (Other)
  Sender: FDA-Public Use
  Company Number: FK201101311

PATIENT
  Sex: Female

DRUGS (2)
  1. TAXOL [Suspect]
     Indication: PRODUCT USED FOR UNKNOWN INDICATION
  2. CARBOPLATIN [Suspect]
     Indication: PRODUCT USED FOR UNKNOWN INDICATION

REACTIONS (3)
  - MANIA [None]
  - MOOD ALTERED [None]
  - DELIRIUM [None]
